FAERS Safety Report 21009161 (Version 1)
Quarter: 2022Q2

REPORT INFORMATION
  Report Type: Other
  Country: GB (occurrence: None)
  Receive Date: 20220627
  Receipt Date: 20220627
  Transmission Date: 20220721
  Serious: Yes (Other)
  Sender: FDA-Public Use
  Company Number: GB-ROCHE-3122292

PATIENT
  Age: 42 Year
  Sex: Male

DRUGS (5)
  1. BEVACIZUMAB [Suspect]
     Active Substance: BEVACIZUMAB
     Indication: Non-small cell lung cancer metastatic
     Route: 065
  2. ATEZOLIZUMAB [Suspect]
     Active Substance: ATEZOLIZUMAB
     Indication: Non-small cell lung cancer metastatic
     Route: 065
  3. CARBOPLATIN [Concomitant]
     Active Substance: CARBOPLATIN
     Indication: Non-small cell lung cancer metastatic
     Route: 065
  4. PACLITAXEL [Concomitant]
     Active Substance: PACLITAXEL
     Indication: Non-small cell lung cancer metastatic
     Route: 065
  5. EDOXABAN [Concomitant]
     Active Substance: EDOXABAN

REACTIONS (8)
  - Acute kidney injury [Unknown]
  - Immune-mediated hepatitis [Unknown]
  - Mucosal inflammation [Unknown]
  - Tooth abscess [Unknown]
  - Disease progression [Unknown]
  - Drug ineffective [Unknown]
  - Biliary tract disorder [Unknown]
  - Metastases to liver [Unknown]
